FAERS Safety Report 25070134 (Version 1)
Quarter: 2025Q1

REPORT INFORMATION
  Report Type: Spontaneous
  Country: US (occurrence: US)
  Receive Date: 20250312
  Receipt Date: 20250312
  Transmission Date: 20250409
  Serious: Yes (Death, Life-Threatening, Hospitalization, Other)
  Sender: AMGEN
  Company Number: US-AMGEN-USASP2025043838

PATIENT
  Age: 39 Year
  Sex: Female

DRUGS (14)
  1. PREDNISONE [Suspect]
     Active Substance: PREDNISONE
     Indication: T-cell lymphoma
     Route: 065
     Dates: start: 202312
  2. FILGRASTIM [Suspect]
     Active Substance: FILGRASTIM
     Indication: T-cell lymphoma
     Route: 065
     Dates: start: 202402
  3. CYCLOPHOSPHAMIDE [Concomitant]
     Active Substance: CYCLOPHOSPHAMIDE
     Indication: T-cell lymphoma
     Dates: start: 202312
  4. EPIRUBICIN [Concomitant]
     Active Substance: EPIRUBICIN
     Indication: T-cell lymphoma
     Dates: start: 202312
  5. VINCRISTINE [Concomitant]
     Active Substance: VINCRISTINE
     Indication: T-cell lymphoma
     Dates: start: 202312
  6. ETOPOSIDE [Concomitant]
     Active Substance: ETOPOSIDE
     Indication: T-cell lymphoma
     Dates: start: 202312
  7. METHOTREXATE [Concomitant]
     Active Substance: METHOTREXATE
     Indication: T-cell lymphoma
     Dates: start: 202402
  8. LEUCOVORIN [Concomitant]
     Active Substance: LEUCOVORIN\LEUCOVORIN CALCIUM
     Indication: T-cell lymphoma
     Dates: start: 202402
  9. DEXAMETHASONE [Concomitant]
     Active Substance: DEXAMETHASONE
     Indication: T-cell lymphoma
     Dates: start: 202402
  10. MESNA [Concomitant]
     Active Substance: MESNA
     Indication: T-cell lymphoma
  11. IFOSFAMIDE [Concomitant]
     Active Substance: IFOSFAMIDE
     Indication: T-cell lymphoma
     Dates: start: 202402
  12. PEG/L-ASPARAGINASE [Concomitant]
     Active Substance: PEGASPARGASE
     Indication: T-cell lymphoma
     Dates: start: 2024
  13. GEMCITABINE [Concomitant]
     Active Substance: GEMCITABINE
     Indication: T-cell lymphoma
     Route: 065
     Dates: start: 202405
  14. OXALIPLATIN [Concomitant]
     Active Substance: OXALIPLATIN
     Indication: T-cell lymphoma
     Dates: start: 202405

REACTIONS (11)
  - Death [Fatal]
  - Lactic acidosis [Unknown]
  - Hypoglycaemia [Unknown]
  - Disseminated intravascular coagulation [Unknown]
  - Shock [Unknown]
  - Lymphadenopathy [Unknown]
  - Pancytopenia [Unknown]
  - Febrile neutropenia [Unknown]
  - Tracheal mass [Unknown]
  - Necrotic lymphadenopathy [Unknown]
  - Tonsillar hypertrophy [Unknown]
